FAERS Safety Report 9086490 (Version 1)
Quarter: 2013Q1

REPORT INFORMATION
  Report Type: Spontaneous
  Country: AR (occurrence: AR)
  Receive Date: 20130131
  Receipt Date: 20130131
  Transmission Date: 20140127
  Serious: Yes (Other)
  Sender: FDA-Public Use
  Company Number: AR-PFIZER INC-2013038175

PATIENT
  Sex: Female

DRUGS (2)
  1. LYRICA [Suspect]
     Indication: PAIN
     Dosage: 300 MG, 1X/DAY
     Dates: start: 201212, end: 201301
  2. LYRICA [Suspect]
     Indication: BIPOLAR DISORDER

REACTIONS (8)
  - Toxic skin eruption [Unknown]
  - Pruritus [Unknown]
  - Eczema [Unknown]
  - Dysphonia [Unknown]
  - Pharyngitis [Unknown]
  - Blood creatinine increased [Unknown]
  - Red blood cell sedimentation rate increased [Unknown]
  - Off label use [Unknown]
